FAERS Safety Report 7456232-1 (Version None)
Quarter: 2011Q2

REPORT INFORMATION
  Report Type: 
  Country: None (occurrence: None)
  Receive Date: 20110503
  Receipt Date: 20110420
  Transmission Date: 20111010
  Serious: No
  Sender: FDA-Public Use
  Company Number: US-B.I. PHARMACEUTICALS,INC./RIDGEFIELD-2011-BP-11356BP

PATIENT
  Sex: Male

DRUGS (4)
  1. COZAAR [Concomitant]
  2. PRADAXA [Suspect]
     Indication: ATRIAL FIBRILLATION
     Dosage: 300 MG
     Route: 048
     Dates: start: 20110408
  3. DIGOXIN [Concomitant]
  4. COREG [Concomitant]

REACTIONS (5)
  - ERUCTATION [None]
  - VISION BLURRED [None]
  - PAIN [None]
  - HEADACHE [None]
  - ASTHENIA [None]
